FAERS Safety Report 17435206 (Version 1)
Quarter: 2020Q1

REPORT INFORMATION
  Report Type: Spontaneous
  Country: US (occurrence: US)
  Receive Date: 20200204
  Receipt Date: 20200204
  Transmission Date: 20200409
  Serious: No
  Sender: FDA-Public Use
  Company Number: None

PATIENT
  Age: 71 Year
  Sex: Female

DRUGS (1)
  1. TRUVADA [Suspect]
     Active Substance: EMTRICITABINE\TENOFOVIR DISOPROXIL FUMARATE
     Dosage: ?          OTHER DOSE:200/300MG;?
     Route: 048
     Dates: start: 201909, end: 202001

REACTIONS (2)
  - Weight increased [None]
  - Malaise [None]

NARRATIVE: CASE EVENT DATE: 20200204
